FAERS Safety Report 9224746 (Version 3)
Quarter: 2013Q4

REPORT INFORMATION
  Report Type: Report from Study
  Country: FR (occurrence: FR)
  Receive Date: 20130411
  Receipt Date: 20131011
  Transmission Date: 20140711
  Serious: Yes (Other)
  Sender: FDA-Public Use
  Company Number: FR-ASTELLAS-2012EU004239

PATIENT
  Age: 25 Year
  Sex: Male
  Weight: 60 kg

DRUGS (4)
  1. TACROLIMUS MR4 CAPSULES [Suspect]
     Indication: RENAL TRANSPLANT
     Dosage: 5 MG, UID/QD
     Route: 048
     Dates: start: 20110428
  2. CELLCEPT /01275102/ [Suspect]
     Indication: RENAL TRANSPLANT
     Dosage: 750 MG, BID
     Route: 048
     Dates: start: 20080801
  3. BARACLUDE [Concomitant]
     Indication: HEPATITIS B
     Dosage: 0.5 MG, UID/QD
     Route: 048
     Dates: start: 20101206
  4. UVEDOSE [Concomitant]
     Indication: VITAMIN D DEFICIENCY
     Dosage: 100000 IU, OTHER
     Route: 048
     Dates: start: 20110216

REACTIONS (3)
  - Upper limb fracture [Not Recovered/Not Resolved]
  - Pain [Recovered/Resolved]
  - Rash [Unknown]
